FAERS Safety Report 4269732-2 (Version None)
Quarter: 2004Q1

REPORT INFORMATION
  Report Type: 
  Country: None (occurrence: None)
  Receive Date: 20040106
  Receipt Date: 20031222
  Transmission Date: 20041129
  Serious: Yes (Hospitalization)
  Sender: FDA-Public Use
  Company Number: 2003SA000180

PATIENT
  Age: 56 Year
  Sex: Female

DRUGS (11)
  1. THYMOGLOBULIN [Suspect]
     Indication: RENAL TRANSPLANT
     Dosage: INTRAVENOUS
     Route: 042
     Dates: start: 20030419, end: 20030423
  2. LASIX [Suspect]
     Dosage: 40 MG; DAILY; ORAL
     Route: 048
     Dates: start: 20030423, end: 20030425
  3. PROGRAF [Suspect]
     Indication: RENAL TRANSPLANT
     Dosage: 4.5 MG; DAILY; ORAL
     Route: 048
     Dates: start: 20030422
  4. AMLODIPINE BESYLATE [Suspect]
     Dosage: 10 MG; DAILY; ORAL
     Route: 048
     Dates: start: 20030423, end: 20030425
  5. MOPRAL [Concomitant]
  6. CORTANCYL [Concomitant]
  7. SOTALEX [Concomitant]
  8. GAVISCON [Concomitant]
  9. COZAAR [Concomitant]
  10. FORLAX [Concomitant]
  11. CELLCEPT [Concomitant]

REACTIONS (1)
  - CYTOLYTIC HEPATITIS [None]
